FAERS Safety Report 11937918 (Version 1)
Quarter: 2016Q1

REPORT INFORMATION
  Report Type: Spontaneous
  Country: US (occurrence: None)
  Receive Date: 20160121
  Receipt Date: 20160121
  Transmission Date: 20160526
  Serious: Yes (Death)
  Sender: FDA-Public Use
  Company Number: None

PATIENT
  Age: 43 Year
  Sex: Female
  Weight: 117.94 kg

DRUGS (1)
  1. FERAHEME [Suspect]
     Active Substance: FERUMOXYTOL NON-STOICHIOMETRIC MAGNETITE
     Indication: IRON DEFICIENCY ANAEMIA
     Dates: start: 20150929

REACTIONS (6)
  - Infusion related reaction [None]
  - Protrusion tongue [None]
  - Nausea [None]
  - Pulse absent [None]
  - Erythema [None]
  - Posturing [None]

NARRATIVE: CASE EVENT DATE: 20150929
